FAERS Safety Report 14747008 (Version 3)
Quarter: 2024Q4

REPORT INFORMATION
  Report Type: Report from Study
  Country: CA (occurrence: CA)
  Receive Date: 20180411
  Receipt Date: 20241011
  Transmission Date: 20250115
  Serious: Yes (Other)
  Sender: JOHNSON AND JOHNSON
  Company Number: CA-JNJFOC-20180406063

PATIENT
  Age: 65 Year
  Sex: Female
  Weight: 68.04 kg

DRUGS (1)
  1. SIMPONI [Suspect]
     Active Substance: GOLIMUMAB
     Indication: Psoriatic arthropathy
     Dosage: STRENGTH = 50 MG
     Route: 058
     Dates: start: 20150821, end: 20240814

REACTIONS (3)
  - Medical device site reaction [Recovering/Resolving]
  - Osteomyelitis [Unknown]
  - Therapy cessation [Unknown]
